FAERS Safety Report 5138328-2 (Version None)
Quarter: 2006Q4

REPORT INFORMATION
  Report Type: 
  Country: None (occurrence: None)
  Receive Date: 20061030
  Receipt Date: 20060822
  Transmission Date: 20070319
  Serious: No
  Sender: FDA-Public Use
  Company Number: US-GLAXOSMITHKLINE-A0617692A

PATIENT
  Sex: Male

DRUGS (10)
  1. ADVAIR HFA [Suspect]
     Indication: ASTHMA
     Dosage: 1PUFF TWICE PER DAY
     Route: 055
     Dates: start: 20060822
  2. ALBUTEROL [Concomitant]
  3. NEXIUM [Concomitant]
  4. LISINOPRIL [Concomitant]
  5. SOTALOL HYDROCHLORIDE [Concomitant]
  6. NORVASC [Concomitant]
  7. SULFAMETHOXAZOLE + TRIMETHOPRIM [Concomitant]
  8. TUSSIONEX [Concomitant]
  9. WARFARIN SODIUM [Concomitant]
  10. FLONASE [Concomitant]

REACTIONS (2)
  - ACCIDENTAL OVERDOSE [None]
  - COUGH [None]
